FAERS Safety Report 8883646 (Version 1)
Quarter: 2012Q4

REPORT INFORMATION
  Report Type: 
  Country: DK (occurrence: DK)
  Receive Date: 20121102
  Receipt Date: 20121102
  Transmission Date: 20130627
  Serious: Yes (Hospitalization, Other)
  Sender: FDA-Public Use
  Company Number: DK-PFIZER INC-2012178210

PATIENT
  Age: 58 Year
  Sex: Female

DRUGS (7)
  1. LYRICA [Suspect]
     Indication: DEPRESSION
     Dosage: 150 mg, 2x/day
     Route: 048
  2. VENLAFAXINE [Suspect]
     Indication: DEPRESSION
     Dosage: 75 mg, 1x/day
     Route: 048
  3. CLOPIXOL [Suspect]
     Indication: DEPRESSION
     Dosage: 10 mg, 3x/day
     Route: 048
  4. DUROGESIC [Concomitant]
     Indication: PAIN
     Dosage: UNK
  5. DIAZEPAM ^DAK^ [Concomitant]
     Indication: ANXIETY
     Dosage: UNK
  6. PERSANTIN [Concomitant]
     Indication: THROMBOSIS PROPHYLAXIS
     Dosage: UNK
  7. LYSANTIN [Concomitant]
     Dosage: UNK

REACTIONS (6)
  - Overdose [Recovered/Resolved]
  - Confusional state [Recovered/Resolved]
  - Somnolence [Recovered/Resolved]
  - Dizziness [Recovered/Resolved]
  - Urinary retention [Recovered/Resolved]
  - Fall [Recovered/Resolved]
